FAERS Safety Report 7094132-X (Version None)
Quarter: 2010Q4

REPORT INFORMATION
  Report Type: 
  Country: None (occurrence: None)
  Receive Date: 20101110
  Receipt Date: 20101103
  Transmission Date: 20110411
  Serious: Yes (Other)
  Sender: FDA-Public Use
  Company Number: US-BRISTOL-MYERS SQUIBB COMPANY-15368350

PATIENT
  Age: 54 Year
  Sex: Male

DRUGS (1)
  1. ABILIFY [Suspect]
     Indication: DEPRESSION
     Dosage: DOSE INCREASED FROM 5MG AND 10 MG THEN TO 15MG

REACTIONS (2)
  - DEAFNESS [None]
  - VISION BLURRED [None]
